FAERS Safety Report 18736816 (Version 1)
Quarter: 2021Q1

REPORT INFORMATION
  Report Type: Other
  Country: ER (occurrence: ER)
  Receive Date: 20210113
  Receipt Date: 20210113
  Transmission Date: 20210419
  Serious: Yes (Disabling, Other)
  Sender: FDA-Public Use
  Company Number: ER-NEOPHARMA INC-000375

PATIENT
  Age: 6 Year
  Sex: Female

DRUGS (1)
  1. AMOXICILLIN. [Suspect]
     Active Substance: AMOXICILLIN
     Indication: PHARYNGITIS STREPTOCOCCAL

REACTIONS (8)
  - Anaemia [Unknown]
  - Phlebitis [Unknown]
  - Staphylococcal infection [Unknown]
  - Blindness [Unknown]
  - Stevens-Johnson syndrome [Unknown]
  - Cellulitis [Unknown]
  - Deafness [Unknown]
  - Adjustment disorder [Unknown]
